FAERS Safety Report 16740795 (Version 1)
Quarter: 2019Q4

REPORT INFORMATION
  Report Type: Spontaneous
  Country: US (occurrence: US)
  Receive Date: 20190825
  Receipt Date: 20190825
  Transmission Date: 20200122
  Serious: Yes (Life-Threatening, Hospitalization, Disabling)
  Sender: FDA-Public Use
  Company Number: None

PATIENT
  Age: 39 Year
  Sex: Female
  Weight: 63 kg

DRUGS (1)
  1. XULANE [Suspect]
     Active Substance: ETHINYL ESTRADIOL\NORELGESTROMIN
     Indication: UTERINE LEIOMYOMA
     Dosage: ?          QUANTITY:1 PATCH(ES);OTHER FREQUENCY:ONCE A WEEK;?
     Route: 061
     Dates: start: 20140501, end: 20150207

REACTIONS (7)
  - Clostridium difficile infection [None]
  - Staphylococcal infection [None]
  - Mesenteric artery thrombosis [None]
  - Escherichia infection [None]
  - Enterococcal infection [None]
  - Sepsis [None]
  - Device related infection [None]

NARRATIVE: CASE EVENT DATE: 20150207
